FAERS Safety Report 6051390-8 (Version None)
Quarter: 2009Q1

REPORT INFORMATION
  Report Type: 
  Country: None (occurrence: None)
  Receive Date: 20090126
  Receipt Date: 20090119
  Transmission Date: 20090719
  Serious: Yes (Disabling)
  Sender: FDA-Public Use
  Company Number: AU-AVENTIS-200821856GDDC

PATIENT
  Age: 43 Year
  Sex: Female

DRUGS (4)
  1. TAXOTERE [Suspect]
     Route: 042
     Dates: start: 20080521, end: 20080910
  2. CARBOPLATIN [Concomitant]
     Dosage: DOSE: AUC 5
     Route: 042
     Dates: start: 20080521, end: 20080910
  3. HERCEPTIN [Concomitant]
     Route: 041
     Dates: start: 20080618
  4. NEULASTA [Concomitant]
     Route: 058
     Dates: start: 20080710, end: 20080911

REACTIONS (5)
  - ANTINUCLEAR ANTIBODY POSITIVE [None]
  - BASAL CELL CARCINOMA [None]
  - GRANULOMA SKIN [None]
  - HYPERTROPHIC SCAR [None]
  - SKIN EXFOLIATION [None]
